FAERS Safety Report 12779369 (Version 2)
Quarter: 2016Q4

REPORT INFORMATION
  Report Type: Report from Study
  Country: US (occurrence: US)
  Receive Date: 20160926
  Receipt Date: 20161019
  Transmission Date: 20170207
  Serious: Yes (Hospitalization)
  Sender: FDA-Public Use
  Company Number: US-MALLINCKRODT-T201604444

PATIENT
  Age: 58 Year
  Sex: Female

DRUGS (2)
  1. REPOSITORY CORTICOTROPIN INJECTION [Suspect]
     Active Substance: CORTICOTROPIN
     Indication: RHEUMATOID ARTHRITIS
     Dosage: 80 UNITS TWICE WEEKLY
     Route: 058
     Dates: start: 20150318
  2. OXYGEN. [Concomitant]
     Active Substance: OXYGEN
     Dosage: UNKNOWN FLOW RATE AND FREQUENCY

REACTIONS (7)
  - Peripheral swelling [Recovered/Resolved]
  - International normalised ratio decreased [Recovered/Resolved]
  - Arrhythmia [Recovered/Resolved]
  - Pain in extremity [Recovered/Resolved]
  - Blood cholesterol increased [Recovered/Resolved]
  - Hypertension [Recovered/Resolved]
  - Dyspnoea [Not Recovered/Not Resolved]

NARRATIVE: CASE EVENT DATE: 20160907
